FAERS Safety Report 12139883 (Version 1)
Quarter: 2016Q1

REPORT INFORMATION
  Report Type: Spontaneous
  Country: GB (occurrence: GB)
  Receive Date: 20160303
  Receipt Date: 20160303
  Transmission Date: 20160526
  Serious: Yes (Other)
  Sender: FDA-Public Use
  Company Number: GB-AUROBINDO-AUR-APL-2016-02013

PATIENT
  Age: 39 Year
  Sex: Male
  Weight: 90 kg

DRUGS (1)
  1. FLUOXETINE [Suspect]
     Active Substance: FLUOXETINE HYDROCHLORIDE
     Indication: SEASONAL AFFECTIVE DISORDER
     Dosage: 20 MG, ONCE A DAY
     Route: 048
     Dates: start: 201510

REACTIONS (3)
  - Male sexual dysfunction [Unknown]
  - Ejaculation failure [Unknown]
  - Ejaculation delayed [Unknown]

NARRATIVE: CASE EVENT DATE: 201601
